FAERS Safety Report 7368941-3 (Version None)
Quarter: 2011Q1

REPORT INFORMATION
  Report Type: 
  Country: None (occurrence: None)
  Receive Date: 20110314
  Receipt Date: 20110303
  Transmission Date: 20110831
  Serious: Yes (Other)
  Sender: FDA-Public Use
  Company Number: 028663

PATIENT
  Sex: Female

DRUGS (2)
  1. LAMICTAL [Concomitant]
  2. KEPPRA [Suspect]
     Indication: EPILEPSY
     Dosage: (1/2 - 0 - 1/2 ORAL)
     Route: 048
     Dates: start: 20110101, end: 20110101

REACTIONS (4)
  - PRURITUS [None]
  - MEMORY IMPAIRMENT [None]
  - COORDINATION ABNORMAL [None]
  - GAIT DISTURBANCE [None]
